FAERS Safety Report 10967954 (Version 1)
Quarter: 2015Q1

REPORT INFORMATION
  Report Type: Spontaneous
  Country: DK (occurrence: FR)
  Receive Date: 20150330
  Receipt Date: 20150330
  Transmission Date: 20150721
  Serious: Yes (Hospitalization)
  Sender: FDA-Public Use
  Company Number: FR-FRI-1000075503

PATIENT
  Age: 34 Year
  Sex: Female

DRUGS (1)
  1. MEMANTINE [Suspect]
     Active Substance: MEMANTINE
     Dosage: 60 MG
     Route: 048
     Dates: start: 20141009, end: 20141016

REACTIONS (14)
  - Headache [Unknown]
  - Burnout syndrome [Unknown]
  - Accidental overdose [Unknown]
  - Vertigo [Unknown]
  - Fatigue [Unknown]
  - Paraesthesia [Unknown]
  - Muscle spasms [Unknown]
  - Nausea [Unknown]
  - Hypotension [Unknown]
  - Constipation [Unknown]
  - Malaise [Unknown]
  - Dyspepsia [Unknown]
  - Feeling abnormal [Unknown]
  - Drug dispensing error [Unknown]

NARRATIVE: CASE EVENT DATE: 20141009
